FAERS Safety Report 11693029 (Version 1)
Quarter: 2015Q4

REPORT INFORMATION
  Report Type: Spontaneous
  Country: US (occurrence: US)
  Receive Date: 20151103
  Receipt Date: 20151103
  Transmission Date: 20160304
  Serious: Yes (Other)
  Sender: FDA-Public Use
  Company Number: US-ASTRAZENECA-2015SF05848

PATIENT
  Age: 15 Year
  Sex: Male

DRUGS (2)
  1. BUDESONIDE. [Suspect]
     Active Substance: BUDESONIDE
     Dosage: HIGHEST DOSE, 6 MG ON ALTERNATE DAYS
     Route: 048
  2. ITRACONAZOLE. [Interacting]
     Active Substance: ITRACONAZOLE
     Route: 065

REACTIONS (2)
  - Drug interaction [Unknown]
  - Cushing^s syndrome [Recovering/Resolving]
